FAERS Safety Report 14981598 (Version 1)
Quarter: 2018Q2

REPORT INFORMATION
  Report Type: Spontaneous
  Country: CA (occurrence: CA)
  Receive Date: 20180607
  Receipt Date: 20180607
  Transmission Date: 20180711
  Serious: Yes (Life-Threatening)
  Sender: FDA-Public Use
  Company Number: CA-ROCHE-2133806

PATIENT
  Age: 88 Year
  Sex: Male

DRUGS (14)
  1. APO-PREDNISONE [Suspect]
     Active Substance: PREDNISONE
     Route: 048
  2. APO-PREDNISONE [Suspect]
     Active Substance: PREDNISONE
     Route: 048
  3. DEXAMETHASONE. [Concomitant]
     Active Substance: DEXAMETHASONE
     Route: 048
  4. IMMUNOGLOBULIN IV [Concomitant]
     Active Substance: HUMAN IMMUNOGLOBULIN G
     Route: 042
  5. APO-PREDNISONE [Suspect]
     Active Substance: PREDNISONE
     Indication: PRODUCT USED FOR UNKNOWN INDICATION
     Route: 048
  6. APO-PREDNISONE [Suspect]
     Active Substance: PREDNISONE
     Route: 048
  7. APO-PREDNISONE [Suspect]
     Active Substance: PREDNISONE
     Route: 048
  8. APO-PREDNISONE [Suspect]
     Active Substance: PREDNISONE
     Route: 048
  9. ELTROMBOPAG [Concomitant]
     Active Substance: ELTROMBOPAG
     Route: 048
  10. IMMUNOGLOBULIN IV [Concomitant]
     Active Substance: HUMAN IMMUNOGLOBULIN G
     Route: 042
  11. APO-PREDNISONE [Suspect]
     Active Substance: PREDNISONE
     Route: 048
  12. DEXAMETHASONE. [Concomitant]
     Active Substance: DEXAMETHASONE
     Route: 048
  13. RITUXAN [Suspect]
     Active Substance: RITUXIMAB
     Indication: IMMUNE THROMBOCYTOPENIC PURPURA
     Route: 042
  14. APO-PREDNISONE [Suspect]
     Active Substance: PREDNISONE
     Route: 048

REACTIONS (6)
  - Myopathy [Not Recovered/Not Resolved]
  - Platelet count decreased [Not Recovered/Not Resolved]
  - Therapeutic response decreased [Unknown]
  - Atypical pneumonia [Not Recovered/Not Resolved]
  - Drug intolerance [Not Recovered/Not Resolved]
  - Immune thrombocytopenic purpura [Not Recovered/Not Resolved]
